FAERS Safety Report 6163199-5 (Version None)
Quarter: 2009Q2

REPORT INFORMATION
  Report Type: 
  Country: None (occurrence: None)
  Receive Date: 20090422
  Receipt Date: 20090415
  Transmission Date: 20091009
  Serious: Yes (Other)
  Sender: FDA-Public Use
  Company Number: US-PURDUE-USA_2009_0037854

PATIENT
  Age: 73 Year
  Sex: Female

DRUGS (2)
  1. SENOKOT [Suspect]
     Indication: CONSTIPATION
     Dosage: 2 TABLET, PRN
     Dates: end: 20090301
  2. DOCUSATE SODIUM [Concomitant]
     Indication: CONSTIPATION
     Dosage: 100 MG, TID

REACTIONS (2)
  - BLOOD GLUCOSE DECREASED [None]
  - DIZZINESS [None]
